FAERS Safety Report 4719328-0 (Version None)
Quarter: 2005Q3

REPORT INFORMATION
  Report Type: 
  Country: None (occurrence: None)
  Receive Date: 20050719
  Receipt Date: 20050711
  Transmission Date: 20060218
  Serious: Yes (Hospitalization, Other)
  Sender: FDA-Public Use
  Company Number: FRWYE822511JUL05

PATIENT
  Age: 10 Year
  Sex: Male

DRUGS (1)
  1. TAZOCILLINE (PIPERACILLIN/TAZOBACTAM, INJECTION) [Suspect]
     Dosage: 2 G 3X PER 1 DAY; INTRAVENOUS
     Route: 042
     Dates: start: 20050417, end: 20050517

REACTIONS (4)
  - LEUKOPENIA [None]
  - LYMPHOPENIA [None]
  - NEUTROPENIA [None]
  - THROMBOCYTOPENIA [None]
